FAERS Safety Report 15515650 (Version 1)
Quarter: 2018Q4

REPORT INFORMATION
  Report Type: Report from Study
  Country: US (occurrence: US)
  Receive Date: 20181017
  Receipt Date: 20181017
  Transmission Date: 20190205
  Serious: Yes (Other)
  Sender: FDA-Public Use
  Company Number: PHEH2018US043049

PATIENT
  Sex: Female

DRUGS (1)
  1. ENTRESTO [Suspect]
     Active Substance: SACUBITRIL\VALSARTAN
     Indication: CARDIAC FAILURE
     Route: 048

REACTIONS (8)
  - Abdominal discomfort [Unknown]
  - Nervousness [Unknown]
  - Gastrointestinal motility disorder [Unknown]
  - Eye pain [Unknown]
  - Dizziness [Unknown]
  - Urinary tract obstruction [Unknown]
  - Flatulence [Unknown]
  - Hot flush [Unknown]
